FAERS Safety Report 9109337 (Version 2)
Quarter: 2013Q1

REPORT INFORMATION
  Report Type: Spontaneous
  Country: CA (occurrence: CA)
  Receive Date: 20130222
  Receipt Date: 20130226
  Transmission Date: 20140127
  Serious: Yes (Hospitalization)
  Sender: FDA-Public Use
  Company Number: PHHY2013CA016217

PATIENT
  Age: 72 Year
  Sex: Female

DRUGS (1)
  1. ZOMETA [Suspect]
     Dosage: 3.3 MG, EVERY 4 WEEKS
     Route: 042
     Dates: start: 20130118

REACTIONS (6)
  - Pneumonia [Recovered/Resolved]
  - Fatigue [Unknown]
  - Confusional state [Recovered/Resolved]
  - Anxiety [Recovered/Resolved]
  - Asthenia [Unknown]
  - Blood pressure increased [Unknown]
